FAERS Safety Report 5915407-0 (Version None)
Quarter: 2008Q4

REPORT INFORMATION
  Report Type: 
  Country: None (occurrence: None)
  Receive Date: 20081010
  Receipt Date: 20081003
  Transmission Date: 20090506
  Serious: Yes (Hospitalization)
  Sender: FDA-Public Use
  Company Number: NL-ABBOTT-08P-114-0480412-01

PATIENT
  Sex: Female

DRUGS (13)
  1. HUMIRA [Suspect]
     Indication: RHEUMATOID ARTHRITIS
     Route: 058
     Dates: start: 20040426
  2. PREDNISONE TAB [Concomitant]
     Indication: RHEUMATOID ARTHRITIS
     Dates: start: 20020101
  3. ALENDRONIC ACID [Concomitant]
     Indication: PROPHYLAXIS
     Dates: start: 20071001
  4. ALENDRONIC ACID [Concomitant]
     Indication: OSTEOPENIA
  5. PANTOPRAZOLE SODIUM [Concomitant]
     Indication: PROPHYLAXIS AGAINST GASTROINTESTINAL ULCER
     Dates: start: 20040101
  6. AZATHIOPRINE [Concomitant]
     Indication: RHEUMATOID ARTHRITIS
     Dates: start: 20071001
  7. AZATHIOPRINE [Concomitant]
     Indication: SJOGREN'S SYNDROME
  8. AZATHIOPRINE [Concomitant]
     Indication: VASCULITIS CEREBRAL
  9. DOMPERIDONE MALEATE [Concomitant]
     Indication: NAUSEA
     Dates: start: 20080501
  10. DIRECTAOUS [Concomitant]
     Indication: SJOGREN'S SYNDROME
     Dates: start: 20040701
  11. IMMUNE GLOBULIN INTRAVENOUS (HUMAN) [Concomitant]
     Indication: VASCULITIS CEREBRAL
     Dates: start: 20080501, end: 20080501
  12. LACTULOSE [Concomitant]
     Indication: CONSTIPATION
     Dates: start: 20080501
  13. COMMERCIAL HUMIRA [Concomitant]
     Indication: RHEUMATOID ARTHRITIS
     Route: 058
     Dates: start: 20040129

REACTIONS (1)
  - VASCULITIS CEREBRAL [None]
